FAERS Safety Report 24972884 (Version 2)
Quarter: 2025Q1

REPORT INFORMATION
  Report Type: Report from Study
  Country: CO (occurrence: CO)
  Receive Date: 20250215
  Receipt Date: 20250308
  Transmission Date: 20250409
  Serious: Yes (Death, Hospitalization)
  Sender: ABBVIE
  Company Number: CO-ABBVIE-6113745

PATIENT
  Age: 69 Year
  Sex: Male
  Weight: 42 kg

DRUGS (1)
  1. VENCLEXTA [Suspect]
     Active Substance: VENETOCLAX
     Indication: Chronic lymphocytic leukaemia
     Dosage: VENCLEXTA BOTTLE 100 MG
     Route: 048
     Dates: start: 20221102, end: 20250131

REACTIONS (4)
  - Unevaluable event [Fatal]
  - Nasal congestion [Unknown]
  - Influenza [Not Recovered/Not Resolved]
  - Lung disorder [Unknown]

NARRATIVE: CASE EVENT DATE: 20250101
